FAERS Safety Report 11956948 (Version 2)
Quarter: 2016Q1

REPORT INFORMATION
  Report Type: Spontaneous
  Country: US (occurrence: US)
  Receive Date: 20160126
  Receipt Date: 20160129
  Transmission Date: 20160526
  Serious: Yes (Other)
  Sender: FDA-Public Use
  Company Number: US-PFIZER INC-2016043073

PATIENT
  Age: 39 Year
  Sex: Male
  Weight: 81.65 kg

DRUGS (4)
  1. LYRICA [Suspect]
     Active Substance: PREGABALIN
     Indication: EUPHORIC MOOD
  2. GENVOYA [Concomitant]
     Active Substance: COBICISTAT\ELVITEGRAVIR\EMTRICITABINE\TENOFOVIR ALAFENAMIDE FUMARATE
     Indication: HIV INFECTION
     Dosage: UNK
  3. LYRICA [Suspect]
     Active Substance: PREGABALIN
     Indication: HERPES ZOSTER
     Dosage: 300 MG, DAILY (100 MG CAPSULE THREE A DAY)
     Route: 048
     Dates: start: 201503
  4. PREZISTA [Concomitant]
     Active Substance: DARUNAVIR ETHANOLATE
     Indication: HIV INFECTION
     Dosage: UNK

REACTIONS (6)
  - Feeling abnormal [Unknown]
  - Drug withdrawal syndrome [Recovering/Resolving]
  - Arthralgia [Recovering/Resolving]
  - Pain [Not Recovered/Not Resolved]
  - Drug dose omission [Not Recovered/Not Resolved]
  - Mental impairment [Recovering/Resolving]

NARRATIVE: CASE EVENT DATE: 20160113
